FAERS Safety Report 9800512 (Version 3)
Quarter: 2014Q1

REPORT INFORMATION
  Report Type: Spontaneous
  Country: US (occurrence: US)
  Receive Date: 20140107
  Receipt Date: 20140328
  Transmission Date: 20141002
  Serious: No
  Sender: FDA-Public Use
  Company Number: US-BIOGENIDEC-2014BI000826

PATIENT
  Age: 42 Year
  Sex: Female

DRUGS (1)
  1. TYSABRI [Suspect]
     Indication: MULTIPLE SCLEROSIS
     Route: 042
     Dates: start: 20120901

REACTIONS (5)
  - Drug ineffective [Unknown]
  - Memory impairment [Unknown]
  - Upper respiratory tract infection [Recovered/Resolved]
  - Oral herpes [Recovered/Resolved]
  - Malaise [Unknown]
